FAERS Safety Report 24397267 (Version 1)
Quarter: 2024Q4

REPORT INFORMATION
  Report Type: Spontaneous
  Country: US (occurrence: US)
  Receive Date: 20241004
  Receipt Date: 20241004
  Transmission Date: 20250114
  Serious: No
  Sender: SANOFI AVENTIS
  Company Number: US-SA-2024SA284914

PATIENT
  Sex: Male

DRUGS (1)
  1. SUTIMLIMAB-JOME [Suspect]
     Active Substance: SUTIMLIMAB-JOME
     Indication: Cold type haemolytic anaemia
     Dosage: 7500 MG, QOW
     Route: 042
     Dates: start: 202409

REACTIONS (1)
  - Autoantibody positive [Unknown]

NARRATIVE: CASE EVENT DATE: 20240913
